FAERS Safety Report 8480095-9 (Version None)
Quarter: 2012Q2

REPORT INFORMATION
  Report Type: 
  Country: None (occurrence: None)
  Receive Date: 20120629
  Receipt Date: 20120619
  Transmission Date: 20120825
  Serious: Yes (Hospitalization, Disabling)
  Sender: FDA-Public Use
  Company Number: US-ELI_LILLY_AND_COMPANY-US201110002593

PATIENT
  Sex: Female

DRUGS (9)
  1. ZYPREXA [Suspect]
     Dosage: 10 MG, EACH MORNING
     Dates: start: 20110401
  2. SIMVASTATIN [Concomitant]
  3. METFORMIN HCL [Concomitant]
  4. LEVOTHYROXINE [Concomitant]
  5. ZYPREXA [Suspect]
     Dosage: 20 MG, EACH EVENING
     Dates: start: 20110401
  6. METOPROLOL SUCCINATE [Concomitant]
  7. ZYPREXA [Suspect]
     Indication: SCHIZOPHRENIA
     Dosage: UNK
  8. ZOLPIDEM [Concomitant]
  9. SERTRALINE HYDROCHLORIDE [Concomitant]

REACTIONS (10)
  - FLUID OVERLOAD [None]
  - ABASIA [None]
  - HYPERSOMNIA [None]
  - POOR PERIPHERAL CIRCULATION [None]
  - OVERDOSE [None]
  - MEMORY IMPAIRMENT [None]
  - DIABETES MELLITUS [None]
  - SCHIZOPHRENIFORM DISORDER [None]
  - SCHIZOPHRENIA [None]
  - ELECTROLYTE IMBALANCE [None]
